FAERS Safety Report 18457156 (Version 1)
Quarter: 2020Q4

REPORT INFORMATION
  Report Type: Report from Study
  Country: IT (occurrence: IT)
  Receive Date: 20201103
  Receipt Date: 20201103
  Transmission Date: 20210114
  Serious: Yes (Other)
  Sender: FDA-Public Use
  Company Number: PHHY2017IT168792

PATIENT
  Age: 77 Year
  Sex: Female

DRUGS (2)
  1. COSENTYX [Suspect]
     Active Substance: SECUKINUMAB
     Dosage: 300 MG, QMO (EVERY 28 DAYS)
     Route: 065
  2. COSENTYX [Suspect]
     Active Substance: SECUKINUMAB
     Indication: PRODUCT USED FOR UNKNOWN INDICATION
     Dosage: 300 MG, UNK
     Route: 065
     Dates: start: 20170509

REACTIONS (18)
  - Nervousness [Recovered/Resolved]
  - Pruritus [Unknown]
  - Cystitis [Unknown]
  - Weight increased [Unknown]
  - Injection site pain [Unknown]
  - Pneumonia [Unknown]
  - Faeces soft [Unknown]
  - Inflammation [Unknown]
  - Psoriasis [Unknown]
  - Nervousness [Unknown]
  - Pain in extremity [Unknown]
  - Back pain [Unknown]
  - Mood altered [Unknown]
  - Pain [Unknown]
  - Arthralgia [Unknown]
  - Anxiety [Recovered/Resolved]
  - Insomnia [Unknown]
  - Bronchitis [Unknown]

NARRATIVE: CASE EVENT DATE: 20180321
